FAERS Safety Report 7438896-1 (Version None)
Quarter: 2011Q2

REPORT INFORMATION
  Report Type: 
  Country: None (occurrence: None)
  Receive Date: 20110426
  Receipt Date: 20110413
  Transmission Date: 20111010
  Serious: Yes (Other)
  Sender: FDA-Public Use
  Company Number: DE-GENENTECH-317105

PATIENT
  Age: 74 Year
  Sex: Female

DRUGS (10)
  1. RITUXIMAB [Suspect]
     Dosage: UNK
     Route: 065
  2. CYCLOPHOSPHAMIDE [Suspect]
     Dosage: UNK
     Route: 065
  3. VINCRISTINE [Suspect]
     Indication: DIFFUSE LARGE B-CELL LYMPHOMA
     Dosage: 1.4 MG/M2, UNK
     Route: 065
  4. PREDNISOLONE [Suspect]
     Dosage: UNK
     Route: 065
  5. DOXORUBICIN HCL [Suspect]
     Indication: DIFFUSE LARGE B-CELL LYMPHOMA
     Dosage: 20 MG/M2, UNK
     Route: 065
  6. DOXORUBICIN HCL [Suspect]
     Dosage: UNK
     Route: 065
  7. PREDNISOLONE [Suspect]
     Indication: DIFFUSE LARGE B-CELL LYMPHOMA
     Dosage: 100 MG, UNK
     Route: 065
  8. CYCLOPHOSPHAMIDE [Suspect]
     Indication: DIFFUSE LARGE B-CELL LYMPHOMA
     Dosage: 750 MG/M2, UNK
     Route: 065
  9. RITUXIMAB [Suspect]
     Indication: DIFFUSE LARGE B-CELL LYMPHOMA
     Dosage: 375 MG/M2, UNK
     Route: 065
  10. VINCRISTINE [Suspect]
     Dosage: UNK
     Route: 065

REACTIONS (12)
  - ANAEMIA [None]
  - NAUSEA [None]
  - HYPERGLYCAEMIA [None]
  - FEBRILE NEUTROPENIA [None]
  - INFECTION [None]
  - CHOLESTASIS [None]
  - THROMBOSIS [None]
  - LEUKOPENIA [None]
  - BLOOD CREATININE INCREASED [None]
  - PYREXIA [None]
  - DIARRHOEA [None]
  - AGITATION [None]
